FAERS Safety Report 7743843-9 (Version None)
Quarter: 2011Q3

REPORT INFORMATION
  Report Type: 
  Country: None (occurrence: None)
  Receive Date: 20110912
  Receipt Date: 20110831
  Transmission Date: 20111222
  Serious: Yes (Hospitalization)
  Sender: FDA-Public Use
  Company Number: US-GLAXOSMITHKLINE-A0897064A

PATIENT
  Age: 55 Year
  Sex: Male

DRUGS (8)
  1. AVANDIA [Suspect]
     Indication: TYPE 2 DIABETES MELLITUS
     Dosage: 4MG PER DAY
     Route: 048
     Dates: start: 20071106, end: 20090204
  2. METFORMIN HCL [Concomitant]
  3. LYRICA [Concomitant]
  4. CYMBALTA [Concomitant]
  5. TOPROL-XL [Concomitant]
  6. LOVASTATIN [Concomitant]
  7. BUSPAR [Concomitant]
  8. DIOVAN [Concomitant]

REACTIONS (3)
  - CARDIOVASCULAR DISORDER [None]
  - CEREBROVASCULAR ACCIDENT [None]
  - BLINDNESS [None]
